FAERS Safety Report 8419506-3 (Version None)
Quarter: 2012Q2

REPORT INFORMATION
  Report Type: 
  Country: None (occurrence: None)
  Receive Date: 20120607
  Receipt Date: 20110525
  Transmission Date: 20120825
  Serious: No
  Sender: FDA-Public Use
  Company Number: US-BRISTOL-MYERS SQUIBB COMPANY-15781909

PATIENT

DRUGS (2)
  1. MIDAZOLAM [Interacting]
  2. SUSTIVA [Suspect]

REACTIONS (2)
  - DRUG INTERACTION [None]
  - SEDATION [None]
